FAERS Safety Report 13876996 (Version 1)
Quarter: 2017Q3

REPORT INFORMATION
  Report Type: Spontaneous
  Country: PL (occurrence: PL)
  Receive Date: 20170817
  Receipt Date: 20170817
  Transmission Date: 20171127
  Serious: Yes (Hospitalization, Other)
  Sender: FDA-Public Use
  Company Number: PL-TEVA-797003ISR

PATIENT
  Age: 59 Year
  Sex: Male

DRUGS (9)
  1. ACETYLSALICYLIC ACID [Suspect]
     Active Substance: ASPIRIN
     Dosage: TAKEN MORE THAN YEAR
  2. METOPROLOL. [Suspect]
     Active Substance: METOPROLOL
     Dosage: TAKEN MORE THAN YEAR
  3. ZOFENOPRIL [Suspect]
     Active Substance: ZOFENOPRIL
     Dosage: TAKEN MORE THAN YEAR
  4. RITONAVIR. [Suspect]
     Active Substance: RITONAVIR
     Dosage: MEDICATION TAKEN FROM 4 WEEKS BEFORE ADMISSION TO THE HOSPITAL
  5. PARITAPREVIR [Suspect]
     Active Substance: PARITAPREVIR
     Dosage: MEDICATION TAKEN FROM 4 WEEKS BEFORE ADMISSION TO THE HOSPITAL
  6. DASABUVIR [Suspect]
     Active Substance: DASABUVIR
     Dosage: MEDICATION TAKEN FROM 4 WEEKS BEFORE ADMISSION TO THE HOSPITAL
  7. ATORVASTATIN [Suspect]
     Active Substance: ATORVASTATIN
     Dosage: MEDICATION TAKEN FROM 3 WEEKS BEFORE ADMISSION TO THE HOSPITAL
  8. OMBITASVIR [Suspect]
     Active Substance: OMBITASVIR
     Dosage: MEDICATION TAKEN FROM 4 WEEKS BEFORE ADMISSION TO THE HOSPITAL
  9. LERCANIDIPINE [Interacting]
     Active Substance: LERCANIDIPINE
     Dosage: MEDICATION TAKEN FROM 3 WEEKS BEFORE ADMISSION TO THE HOSPITAL

REACTIONS (3)
  - Alanine aminotransferase increased [Recovering/Resolving]
  - Hepatotoxicity [Recovering/Resolving]
  - Drug interaction [Recovered/Resolved]
